FAERS Safety Report 6291681-9 (Version None)
Quarter: 2009Q3

REPORT INFORMATION
  Report Type: 
  Country: None (occurrence: None)
  Receive Date: 20090730
  Receipt Date: 20090730
  Transmission Date: 20100115
  Serious: Yes (Other)
  Sender: FDA-Public Use
  Company Number: None

PATIENT
  Age: 92 Year
  Sex: Female
  Weight: 51.4 kg

DRUGS (1)
  1. ASTEPRO [Suspect]
     Indication: RHINITIS ALLERGIC
     Dosage: 2 SPRAYS DAILY NASAL
     Route: 045
     Dates: start: 20090724, end: 20090726

REACTIONS (1)
  - COGNITIVE DISORDER [None]
